FAERS Safety Report 23561691 (Version 3)
Quarter: 2024Q2

REPORT INFORMATION
  Report Type: Spontaneous
  Country: CA (occurrence: CA)
  Receive Date: 20240225
  Receipt Date: 20240402
  Transmission Date: 20240716
  Serious: Yes (Hospitalization, Other)
  Sender: FDA-Public Use
  Company Number: CA-TEVA-VS-3161024

PATIENT
  Age: 15 Year
  Sex: Male

DRUGS (1)
  1. MYCOPHENOLATE MOFETIL [Suspect]
     Active Substance: MYCOPHENOLATE MOFETIL
     Indication: Prophylaxis against transplant rejection
     Route: 065

REACTIONS (5)
  - Diarrhoea [Recovered/Resolved]
  - Enteritis [Unknown]
  - Mouth ulceration [Recovered/Resolved]
  - Odynophagia [Recovered/Resolved]
  - Weight decreased [Recovered/Resolved]
